FAERS Safety Report 8673071 (Version 3)
Quarter: 2013Q4

REPORT INFORMATION
  Report Type: Spontaneous
  Country: BE (occurrence: BE)
  Receive Date: 20120703
  Receipt Date: 20131031
  Transmission Date: 20140711
  Serious: Yes (Life-Threatening, Other)
  Sender: FDA-Public Use
  Company Number: BE-009507513-2012SP036332

PATIENT
  Age: 50 Year
  Sex: Female

DRUGS (5)
  1. ESMERON [Suspect]
     Indication: NEUROMUSCULAR BLOCKING THERAPY
     Dosage: UNK UNK, UNKNOWN
  2. CRIXOFOL [Concomitant]
     Dosage: UNK UNK, UNKNOWN
     Route: 065
  3. REMIFENTANIL HYDROCHLORIDE [Concomitant]
     Dosage: UNK UNK, UNKNOWN
     Route: 065
  4. CHLORHEXIDINE GLUCONATE [Concomitant]
     Dosage: UNK UNK, UNKNOWN
     Route: 065
  5. ISO-BETADINE [Concomitant]

REACTIONS (8)
  - Hypoxia [Unknown]
  - Periorbital oedema [Unknown]
  - Face oedema [Unknown]
  - Hypotension [Unknown]
  - Tachycardia [Unknown]
  - Bronchospasm [Unknown]
  - Erythema [Unknown]
  - Type I hypersensitivity [Unknown]
